FAERS Safety Report 9216949 (Version 1)
Quarter: 2013Q2

REPORT INFORMATION
  Report Type: Spontaneous
  Country: US (occurrence: US)
  Receive Date: 20130408
  Receipt Date: 20130408
  Transmission Date: 20140414
  Serious: Yes (Other)
  Sender: FDA-Public Use
  Company Number: US-GLAXOSMITHKLINE-A1014236A

PATIENT
  Sex: Male

DRUGS (1)
  1. RETIGABINE [Suspect]
     Indication: CONVULSION
     Route: 065

REACTIONS (2)
  - Convulsion [Unknown]
  - Drug ineffective [Unknown]
